FAERS Safety Report 10778964 (Version 3)
Quarter: 2015Q3

REPORT INFORMATION
  Report Type: Spontaneous
  Country: IT (occurrence: IT)
  Receive Date: 20150210
  Receipt Date: 20150703
  Transmission Date: 20151125
  Serious: Yes (Hospitalization)
  Sender: FDA-Public Use
  Company Number: IT-ROCHE-1535446

PATIENT
  Age: 76 Year
  Sex: Female

DRUGS (10)
  1. SEROQUEL [Suspect]
     Active Substance: QUETIAPINE FUMARATE
     Indication: PRODUCT USED FOR UNKNOWN INDICATION
     Dosage: 25 MG FILM-COATED TABLETS 6 TABLETS
     Route: 048
     Dates: start: 20150129, end: 20150205
  2. FLUMAZENIL. [Concomitant]
     Active Substance: FLUMAZENIL
  3. LASIX [Concomitant]
     Active Substance: FUROSEMIDE
     Dosage: ^25 MG TABLETS^ 30  TABS
     Route: 048
  4. RIVOTRIL [Suspect]
     Active Substance: CLONAZEPAM
     Indication: PRODUCT USED FOR UNKNOWN INDICATION
     Dosage: ^2.5 MG/ML ORAL DROPS, SOLUTION^ 10 ML BOTTLE
     Route: 048
     Dates: start: 20150129, end: 20150205
  5. PANTOPRAZOLE SODIUM. [Concomitant]
     Active Substance: PANTOPRAZOLE SODIUM
  6. CORDARONE [Concomitant]
     Active Substance: AMIODARONE HYDROCHLORIDE
     Dosage: 100 MG  GASTRO-RESISTANT TABS 30 TABLETS
     Route: 048
  7. BISOPROLOL HEMIFUMARATE [Concomitant]
     Active Substance: BISOPROLOL FUMARATE
  8. ALLOPURINOL. [Concomitant]
     Active Substance: ALLOPURINOL
     Route: 065
  9. ALDACTONE (ITALY) [Concomitant]
     Dosage: 25 MG HARD  CAPSULE 16 CAPSULES
     Route: 048
  10. XERISTAR [Concomitant]
     Active Substance: DULOXETINE HYDROCHLORIDE
     Dosage: 60 MG GASTRO-RESISTANT HARD CAPSULES
     Route: 048

REACTIONS (2)
  - Speech disorder [Recovering/Resolving]
  - Sopor [Recovering/Resolving]

NARRATIVE: CASE EVENT DATE: 20150205
